FAERS Safety Report 7344454-X (Version None)
Quarter: 2011Q1

REPORT INFORMATION
  Report Type: 
  Country: None (occurrence: None)
  Receive Date: 20110310
  Receipt Date: 20110302
  Transmission Date: 20110831
  Serious: Yes (Hospitalization)
  Sender: FDA-Public Use
  Company Number: US-ELI_LILLY_AND_COMPANY-US201103001070

PATIENT
  Sex: Female
  Weight: 101.1 kg

DRUGS (11)
  1. HYDROCHLOROTHIAZIDE [Concomitant]
  2. BEVACIZUMAB [Suspect]
     Indication: NON-SMALL CELL LUNG CANCER
     Dosage: 1525 MG, EVERY 3 WEEKS
     Route: 042
     Dates: start: 20101213, end: 20110128
  3. ALLOPURINOL [Concomitant]
  4. EMEND [Concomitant]
  5. FOLIC ACID [Concomitant]
  6. LEVOTHYROXINE [Concomitant]
  7. COMPAZINE [Concomitant]
  8. GLYBURIDE [Concomitant]
  9. PEMETREXED [Suspect]
     Indication: NON-SMALL CELL LUNG CANCER
     Dosage: 825 MG, EVERY 3 WEEKS
     Route: 042
     Dates: start: 20101213, end: 20110128
  10. CISPLATIN [Suspect]
     Indication: NON-SMALL CELL LUNG CANCER
     Dosage: 122 MG, EVERY 3 WEKS
     Route: 042
     Dates: start: 20101213, end: 20110123
  11. DEXAMETHASONE [Concomitant]

REACTIONS (2)
  - HYPOKALAEMIA [None]
  - DEHYDRATION [None]
